FAERS Safety Report 6539822-X (Version None)
Quarter: 2010Q1

REPORT INFORMATION
  Report Type: 
  Country: None (occurrence: None)
  Receive Date: 20100115
  Receipt Date: 20100107
  Transmission Date: 20100710
  Serious: Yes (Hospitalization, Other)
  Sender: FDA-Public Use
  Company Number: JP-JNJFOC-20100102533

PATIENT
  Sex: Male

DRUGS (16)
  1. TOPINA [Suspect]
     Indication: EPILEPSY
     Route: 048
  2. TOPINA [Suspect]
     Route: 048
  3. TOPINA [Suspect]
     Route: 048
  4. TOPINA [Suspect]
     Route: 048
  5. TOPINA [Suspect]
     Route: 048
  6. TOPINA [Suspect]
     Route: 048
  7. TOPINA [Suspect]
     Route: 048
  8. TOPINA [Suspect]
     Route: 048
  9. TOPINA [Suspect]
     Route: 048
  10. TOPINA [Suspect]
     Route: 048
  11. TOPINA [Suspect]
     Route: 048
  12. TOPINA [Suspect]
     Route: 048
  13. TOPINA [Suspect]
     Route: 048
  14. CARBAMAZEPINE [Suspect]
     Indication: EPILEPSY
     Route: 048
  15. LAMICTAL [Suspect]
     Indication: EPILEPSY
     Route: 048
  16. GABAPEN [Concomitant]
     Indication: DRUG USE FOR UNKNOWN INDICATION
     Route: 048

REACTIONS (2)
  - COGNITIVE DISORDER [None]
  - EPILEPSY [None]
